FAERS Safety Report 8365103-8 (Version None)
Quarter: 2012Q2

REPORT INFORMATION
  Report Type: 
  Country: None (occurrence: None)
  Receive Date: 20120514
  Receipt Date: 20120418
  Transmission Date: 20120825
  Serious: Yes (Hospitalization, Other)
  Sender: FDA-Public Use
  Company Number: AG-2012-000105

PATIENT
  Age: 19 Month
  Sex: Male

DRUGS (3)
  1. AZATHIOPRINE [Suspect]
     Indication: RENAL TRANSPLANT
     Dosage: 1 DOSAGE FORMS (50 MILLIGRAM,1 IN 1 DAYS) TRANSPLACENTAL
     Route: 064
  2. PREDNISONE TAB [Concomitant]
  3. PROGRAF [Concomitant]

REACTIONS (5)
  - DEVELOPMENTAL DELAY [None]
  - BLOOD ALKALINE PHOSPHATASE INCREASED [None]
  - FOETAL EXPOSURE DURING PREGNANCY [None]
  - CONVULSION [None]
  - HYPERTONIA [None]
